FAERS Safety Report 7928711-1 (Version None)
Quarter: 2011Q4

REPORT INFORMATION
  Report Type: 
  Country: None (occurrence: None)
  Receive Date: 20111118
  Receipt Date: 20111117
  Transmission Date: 20120403
  Serious: Yes (Hospitalization)
  Sender: FDA-Public Use
  Company Number: IT-BAYER-2011-111409

PATIENT
  Age: 79 Year
  Sex: Male

DRUGS (3)
  1. ROSUVASTATIN [Concomitant]
     Dosage: DAILY DOSE 20 MG
     Route: 048
  2. CARVEDILOL [Concomitant]
     Dosage: DAILY DOSE 6.25 MG
  3. ASPIRIN [Suspect]
     Indication: PROPHYLAXIS
     Dosage: 100 MG, QD
     Route: 048
     Dates: start: 20070101, end: 20111104

REACTIONS (2)
  - RECTAL HAEMORRHAGE [None]
  - ANAEMIA [None]
